FAERS Safety Report 10312055 (Version 2)
Quarter: 2014Q3

REPORT INFORMATION
  Report Type: Spontaneous
  Country: CH (occurrence: CH)
  Receive Date: 20140717
  Receipt Date: 20140902
  Transmission Date: 20150326
  Serious: Yes (Hospitalization)
  Sender: FDA-Public Use
  Company Number: CH-PFIZER INC-2014197619

PATIENT
  Age: 59 Year
  Sex: Female
  Weight: 78 kg

DRUGS (18)
  1. ALDACTONE [Suspect]
     Active Substance: SPIRONOLACTONE
     Indication: PULMONARY HYPERTENSION
     Dosage: 50 MG, 1X/DAY
     Route: 048
     Dates: end: 20140617
  2. COLISTIN [Interacting]
     Active Substance: COLISTIN
     Dosage: 3 MILLIONIU, 3X/DAY
     Route: 041
     Dates: start: 20140614, end: 20140617
  3. FRAGMIN [Concomitant]
     Active Substance: DALTEPARIN SODIUM
  4. SEROPRAM [Concomitant]
     Active Substance: CITALOPRAM HYDROBROMIDE
  5. CALCIMAGON [Concomitant]
     Active Substance: CALCIUM
  6. OBRACIN [Interacting]
     Active Substance: TOBRAMYCIN
     Dosage: 200 MG, 1X/DAY
     Route: 041
     Dates: end: 20140617
  7. PANTOZOL [Concomitant]
     Active Substance: PANTOPRAZOLE SODIUM
  8. COLISTIN [Interacting]
     Active Substance: COLISTIN
     Indication: PSEUDOMONAL SEPSIS
     Dosage: 9 MILLIONIU, SINGLE
     Route: 041
     Dates: start: 20140613, end: 20140613
  9. MERONEM [Concomitant]
     Active Substance: MEROPENEM
     Indication: PSEUDOMONAL SEPSIS
  10. TAZOBAC [Concomitant]
     Active Substance: PIPERACILLIN SODIUM\TAZOBACTAM SODIUM
     Indication: PSEUDOMONAL SEPSIS
  11. TIENAM [Concomitant]
     Active Substance: CILASTATIN SODIUM\IMIPENEM
     Indication: PSEUDOMONAL SEPSIS
  12. TOREM [Interacting]
     Active Substance: TORSEMIDE
     Indication: PULMONARY HYPERTENSION
     Dosage: 30 MG, 1X/DAY
     Route: 048
     Dates: end: 20140617
  13. DUROGESIC [Concomitant]
     Active Substance: FENTANYL
     Dosage: EVERY THREE DAYS, DOSE UNSPECIFIED
  14. OBRACIN [Interacting]
     Active Substance: TOBRAMYCIN
     Indication: PSEUDOMONAL SEPSIS
     Dosage: 530 MG ON 01:00 AM AND ON 06:00 PM
     Route: 041
     Dates: start: 20140614, end: 20140614
  15. REMERON [Concomitant]
     Active Substance: MIRTAZAPINE
  16. MAGNESIOCARD [Concomitant]
     Active Substance: MAGNESIUM ASPARTATE HYDROCHLORIDE
  17. TEMESTA [Concomitant]
     Active Substance: LORAZEPAM
  18. CIPROFLOXACIN. [Concomitant]
     Active Substance: CIPROFLOXACIN
     Indication: PSEUDOMONAL SEPSIS

REACTIONS (5)
  - Drug level increased [Recovered/Resolved]
  - Tubulointerstitial nephritis [Unknown]
  - Renal failure acute [Recovering/Resolving]
  - Drug interaction [Unknown]
  - Hyperkalaemia [Recovered/Resolved]

NARRATIVE: CASE EVENT DATE: 201406
